FAERS Safety Report 4893891-1 (Version None)
Quarter: 2006Q1

REPORT INFORMATION
  Report Type: 
  Country: None (occurrence: None)
  Receive Date: 20060127
  Receipt Date: 20050415
  Transmission Date: 20060701
  Serious: No
  Sender: FDA-Public Use
  Company Number: US-BRISTOL-MYERS SQUIBB COMPANY-12935052

PATIENT
  Age: 2 Year
  Sex: Male
  Weight: 16 kg

DRUGS (1)
  1. CEFZIL [Suspect]
     Indication: EAR INFECTION
     Dosage: CEFPROZIL 5 ML
     Route: 048

REACTIONS (1)
  - URTICARIA [None]
